FAERS Safety Report 25524665 (Version 1)
Quarter: 2025Q3

REPORT INFORMATION
  Report Type: Spontaneous
  Country: US (occurrence: US)
  Receive Date: 20250707
  Receipt Date: 20250707
  Transmission Date: 20251020
  Serious: Yes (Other)
  Sender: PFIZER
  Company Number: US-PFIZER INC-202500133394

PATIENT
  Age: 12 Year
  Sex: Female

DRUGS (2)
  1. LORLATINIB [Suspect]
     Active Substance: LORLATINIB
     Indication: Inflammatory myofibroblastic tumour
     Dosage: 100 MG, DAILY
  2. LEVOFLOXACIN [Concomitant]
     Active Substance: LEVOFLOXACIN
     Indication: Inflammatory myofibroblastic tumour

REACTIONS (2)
  - Metabolic disorder [Unknown]
  - Affective disorder [Unknown]
